FAERS Safety Report 9983366 (Version 2)
Quarter: 2014Q1

REPORT INFORMATION
  Report Type: Spontaneous
  Country: US (occurrence: US)
  Receive Date: 20140307
  Receipt Date: 20140307
  Transmission Date: 20141002
  Serious: No
  Sender: FDA-Public Use
  Company Number: US-SHIRE-ALL1-2014-01207

PATIENT
  Age: 11 Year
  Sex: Male
  Weight: 36.28 kg

DRUGS (1)
  1. VYVANSE [Suspect]
     Indication: ATTENTION DEFICIT/HYPERACTIVITY DISORDER
     Dosage: 40 MG, 1X/DAY:QD
     Route: 048
     Dates: start: 20140205, end: 20140207

REACTIONS (2)
  - Tic [Not Recovered/Not Resolved]
  - Agitation [Recovered/Resolved]
